FAERS Safety Report 12383853 (Version 1)
Quarter: 2016Q2

REPORT INFORMATION
  Report Type: Spontaneous
  Country: CN (occurrence: CN)
  Receive Date: 20160519
  Receipt Date: 20160519
  Transmission Date: 20160815
  Serious: Yes (Death)
  Sender: FDA-Public Use
  Company Number: CN-PFIZER INC-2015182320

PATIENT
  Age: 26 Year
  Sex: Female

DRUGS (1)
  1. SUTENT [Suspect]
     Active Substance: SUNITINIB MALATE
     Indication: RENAL CELL CARCINOMA
     Dosage: UNK

REACTIONS (4)
  - Hepatic function abnormal [Unknown]
  - Hair colour changes [Unknown]
  - Rash macular [Unknown]
  - Death [Fatal]

NARRATIVE: CASE EVENT DATE: 20160411
